FAERS Safety Report 21106050 (Version 1)
Quarter: 2022Q3

REPORT INFORMATION
  Report Type: Spontaneous
  Country: US (occurrence: US)
  Receive Date: 20220720
  Receipt Date: 20220720
  Transmission Date: 20221027
  Serious: No
  Sender: FDA-Public Use
  Company Number: USA--2021-US-000479

PATIENT
  Age: 77 Year
  Sex: Female

DRUGS (3)
  1. TOBRAMYCIN [Suspect]
     Active Substance: TOBRAMYCIN
     Dates: start: 20210825, end: 20210827
  2. Refresh PF ophthalmic solution [Concomitant]
     Dates: start: 20110103
  3. Sodium Chloride ophthalmic solution 5%/15 mL bottle [Concomitant]
     Dates: start: 20110103

REACTIONS (1)
  - Ocular discomfort [Recovered/Resolved]

NARRATIVE: CASE EVENT DATE: 20210825
